FAERS Safety Report 22771819 (Version 2)
Quarter: 2025Q3

REPORT INFORMATION
  Report Type: Report from Study
  Country: CA (occurrence: CA)
  Receive Date: 20230801
  Receipt Date: 20250721
  Transmission Date: 20251021
  Serious: Yes (Death, Hospitalization, Other)
  Sender: TAKEDA
  Company Number: CA-TAKEDA-2023TUS074575

PATIENT
  Sex: Male

DRUGS (16)
  1. HUMAN IMMUNOGLOBULIN G [Suspect]
     Active Substance: HUMAN IMMUNOGLOBULIN G
     Indication: Secondary immunodeficiency
     Dosage: 8 GRAM, 1/WEEK
     Dates: start: 20180524
  2. HUMAN IMMUNOGLOBULIN G [Suspect]
     Active Substance: HUMAN IMMUNOGLOBULIN G
     Dosage: 10 GRAM, 1/WEEK
  3. SOTALOL [Concomitant]
     Active Substance: SOTALOL
     Dosage: 40 MILLIGRAM, BID
  4. APIXABAN [Concomitant]
     Active Substance: APIXABAN
     Dosage: 5 MILLIGRAM, BID
  5. IMBRUVICA [Concomitant]
     Active Substance: IBRUTINIB
     Dosage: 140 MILLIGRAM, TID
  6. LEVOTHYROXINE [Concomitant]
     Active Substance: LEVOTHYROXINE
  7. CARBIDOPA\LEVODOPA [Concomitant]
     Active Substance: CARBIDOPA\LEVODOPA
  8. ACYCLOVIR [Concomitant]
     Active Substance: ACYCLOVIR
  9. GABAPENTIN [Concomitant]
     Active Substance: GABAPENTIN
  10. MAGNESIUM [Concomitant]
     Active Substance: MAGNESIUM
  11. METFORMIN [Concomitant]
     Active Substance: METFORMIN HYDROCHLORIDE
  12. NPH INSULIN [Concomitant]
     Active Substance: INSULIN BEEF
     Dosage: UNK UNK, QD
  13. INSULIN NOS [Concomitant]
     Active Substance: INSULIN NOS
  14. HIZENTRA [Concomitant]
     Active Substance: HUMAN IMMUNOGLOBULIN G
  15. SILODOSIN [Concomitant]
     Active Substance: SILODOSIN
  16. ROSUVASTATIN [Concomitant]
     Active Substance: ROSUVASTATIN

REACTIONS (2)
  - Death [Fatal]
  - Infection [Unknown]
